FAERS Safety Report 21907325 (Version 7)
Quarter: 2023Q2

REPORT INFORMATION
  Report Type: Spontaneous
  Country: US (occurrence: US)
  Receive Date: 20230125
  Receipt Date: 20230620
  Transmission Date: 20230721
  Serious: Yes (Death, Life-Threatening, Hospitalization, Other)
  Sender: FDA-Public Use
  Company Number: US-HORIZON THERAPEUTICS-HZN-2023-000501

PATIENT

DRUGS (8)
  1. KRYSTEXXA [Suspect]
     Active Substance: PEGLOTICASE
     Indication: Gouty tophus
     Dosage: FIRST INFUSION UNK
     Route: 042
     Dates: start: 20150215
  2. KRYSTEXXA [Suspect]
     Active Substance: PEGLOTICASE
     Indication: Gout
     Dosage: UNKNOWN INFUSION
     Route: 042
     Dates: start: 201605
  3. KRYSTEXXA [Suspect]
     Active Substance: PEGLOTICASE
     Dosage: UNKNOWN INFUSION
     Route: 042
     Dates: start: 201902
  4. KRYSTEXXA [Suspect]
     Active Substance: PEGLOTICASE
     Dosage: UNKNOWN INFUSION
     Route: 042
     Dates: start: 20221013
  5. KRYSTEXXA [Suspect]
     Active Substance: PEGLOTICASE
     Dosage: UNKNOWN INFUSION
     Route: 042
     Dates: start: 20221110
  6. KRYSTEXXA [Suspect]
     Active Substance: PEGLOTICASE
     Dosage: UNKNOWN INFUSION
     Route: 042
     Dates: start: 20230119
  7. KRYSTEXXA [Suspect]
     Active Substance: PEGLOTICASE
     Dosage: UNKNOWN INFUSION
     Route: 042
     Dates: start: 20230206
  8. KRYSTEXXA [Suspect]
     Active Substance: PEGLOTICASE
     Dosage: UNKNOWN INFUSION
     Route: 042
     Dates: start: 20230223

REACTIONS (11)
  - Death [Fatal]
  - Dyspnoea [Recovering/Resolving]
  - Chest pain [Recovering/Resolving]
  - Myocardial infarction [Unknown]
  - Knee arthroplasty [Unknown]
  - Arterial haemorrhage [Unknown]
  - Thrombosis [Unknown]
  - Skin plaque [Unknown]
  - Arthralgia [Not Recovered/Not Resolved]
  - Gouty tophus [Unknown]
  - Chest discomfort [Recovered/Resolved]

NARRATIVE: CASE EVENT DATE: 20220101
